FAERS Safety Report 23839511 (Version 4)
Quarter: 2025Q4

REPORT INFORMATION
  Report Type: Report from Study
  Country: US (occurrence: US)
  Receive Date: 20240510
  Receipt Date: 20251031
  Transmission Date: 20260118
  Serious: No
  Sender: TAKEDA
  Company Number: US-TAKEDA-2024TUS046145

PATIENT
  Age: 26 Year
  Sex: Female

DRUGS (2)
  1. APADAMTASE ALFA [Suspect]
     Active Substance: APADAMTASE ALFA
     Indication: Thrombotic thrombocytopenic purpura
     Dosage: UNK UNK, Q2WEEKS
     Dates: start: 20240326
  2. APADAMTASE ALFA [Suspect]
     Active Substance: APADAMTASE ALFA
     Dosage: 500 INTERNATIONAL UNIT, Q2WEEKS

REACTIONS (3)
  - Blood potassium abnormal [Unknown]
  - Product dose omission issue [Unknown]
  - Product distribution issue [Unknown]

NARRATIVE: CASE EVENT DATE: 20240507
